FAERS Safety Report 8235921-5 (Version None)
Quarter: 2012Q1

REPORT INFORMATION
  Report Type: 
  Country: None (occurrence: None)
  Receive Date: 20120326
  Receipt Date: 20120322
  Transmission Date: 20120608
  Serious: Yes (Other)
  Sender: FDA-Public Use
  Company Number: GB-MERCK-1203GBR00080

PATIENT
  Age: 72 Year
  Sex: Female
  Weight: 76 kg

DRUGS (7)
  1. METFORMIN [Concomitant]
     Route: 065
  2. FUROSEMIDE [Concomitant]
     Route: 065
  3. RAMIPRIL [Concomitant]
     Route: 065
  4. DOXAZOSIN MESYLATE [Concomitant]
     Route: 065
  5. GLICLAZIDE [Concomitant]
     Route: 065
  6. NIFEDIPINE [Concomitant]
     Route: 065
  7. JANUVIA [Suspect]
     Indication: TYPE 2 DIABETES MELLITUS
     Route: 048
     Dates: start: 20120229

REACTIONS (1)
  - INCREASED APPETITE [None]
